FAERS Safety Report 9227330 (Version 2)
Quarter: 2013Q3

REPORT INFORMATION
  Report Type: Report from Study
  Country: US (occurrence: US)
  Receive Date: 20130412
  Receipt Date: 20130722
  Transmission Date: 20140515
  Serious: Yes (Hospitalization)
  Sender: FDA-Public Use
  Company Number: PHHY2013US034642

PATIENT
  Sex: 0

DRUGS (1)
  1. ARCAPTA [Suspect]

REACTIONS (7)
  - Cellulitis [Recovered/Resolved]
  - Tinea infection [Unknown]
  - Cerebrovascular accident [Recovered/Resolved]
  - Carotid artery stenosis [Not Recovered/Not Resolved]
  - Hyperlipidaemia [Unknown]
  - Hypertension [Unknown]
  - Type 2 diabetes mellitus [Unknown]
